FAERS Safety Report 19888529 (Version 1)
Quarter: 2021Q3

REPORT INFORMATION
  Report Type: Spontaneous
  Country: US (occurrence: US)
  Receive Date: 20210927
  Receipt Date: 20210927
  Transmission Date: 20211014
  Serious: No
  Sender: FDA-Public Use
  Company Number: US-KVK-TECH, INC-20210400041

PATIENT
  Sex: Female

DRUGS (2)
  1. OXYCODONE HYDROCHLORIDE TABLETS, USP [Suspect]
     Active Substance: OXYCODONE HYDROCHLORIDE
     Dosage: 6 PILLS OF OXYCODONE HYDROCHLORIDE 10 MG TABLET (EVERY FOUR HOURS)
     Dates: start: 202101, end: 20210331
  2. OXYCODONE HYDROCHLORIDE TABLETS, USP [Suspect]
     Active Substance: OXYCODONE HYDROCHLORIDE
     Indication: PAIN
     Dosage: 15 MILLIGRAM
     Dates: end: 202101

REACTIONS (7)
  - Headache [Unknown]
  - Abdominal pain upper [Unknown]
  - Respiration abnormal [Unknown]
  - Illness [Unknown]
  - Drug ineffective [Unknown]
  - Pain [Unknown]
  - Hypersensitivity [Unknown]
